FAERS Safety Report 5046925-8 (Version None)
Quarter: 2006Q2

REPORT INFORMATION
  Report Type: 
  Country: None (occurrence: None)
  Receive Date: 20060630
  Receipt Date: 20060621
  Transmission Date: 20061013
  Serious: Yes (Other)
  Sender: FDA-Public Use
  Company Number: 2006078574

PATIENT
  Age: 76 Year
  Sex: Female

DRUGS (2)
  1. VFEND [Suspect]
     Dosage: 200 MG, INTRAVENOUS
     Route: 042
  2. UNSPECIFIED LAXATIVE (LAXATIVES) [Concomitant]

REACTIONS (1)
  - ILEUS PARALYTIC [None]
